FAERS Safety Report 10974746 (Version 4)
Quarter: 2015Q3

REPORT INFORMATION
  Report Type: Spontaneous
  Country: US (occurrence: US)
  Receive Date: 20150401
  Receipt Date: 20150706
  Transmission Date: 20151125
  Serious: Yes (Hospitalization, Other)
  Sender: FDA-Public Use
  Company Number: US-PFIZER INC-2015111954

PATIENT
  Age: 56 Year
  Sex: Male
  Weight: 86 kg

DRUGS (11)
  1. MORPHINE [Concomitant]
     Active Substance: MORPHINE
     Dosage: PATCHES, PILLS, LIQUID
  2. AMIFOSTINE. [Concomitant]
     Active Substance: AMIFOSTINE
     Dosage: UNK
  3. AMLODIPINE [Concomitant]
     Active Substance: AMLODIPINE BESYLATE
     Dosage: UNK
     Dates: start: 2008
  4. XANAX [Concomitant]
     Active Substance: ALPRAZOLAM
     Dosage: UNK
  5. CELEBREX [Suspect]
     Active Substance: CELECOXIB
     Indication: BACK PAIN
     Dosage: 200 MG, 1X/DAY
     Route: 048
     Dates: start: 2012
  6. CELEBREX [Suspect]
     Active Substance: CELECOXIB
     Indication: INFLAMMATION
  7. LORTAB [Concomitant]
     Active Substance: ACETAMINOPHEN\HYDROCODONE BITARTRATE
     Dosage: UNK
  8. VIAGRA [Suspect]
     Active Substance: SILDENAFIL CITRATE
     Indication: ERECTILE DYSFUNCTION
     Dosage: 100 MG, AS NEEDED
     Route: 048
     Dates: start: 2008
  9. B COMPOUND VITAMIN [Concomitant]
     Dosage: 1 DF, DAILY
  10. DIFLUCAN [Concomitant]
     Active Substance: FLUCONAZOLE
     Dosage: UNK
  11. CELEXA [Concomitant]
     Active Substance: CITALOPRAM HYDROBROMIDE
     Dosage: UNK

REACTIONS (9)
  - Oropharyngeal pain [Unknown]
  - Stomatitis [Unknown]
  - Glossodynia [Unknown]
  - Tonsil cancer [Unknown]
  - Radiation skin injury [Unknown]
  - Candida infection [Unknown]
  - Throat cancer [Unknown]
  - Neck injury [Recovered/Resolved]
  - Neoplasm malignant [Unknown]

NARRATIVE: CASE EVENT DATE: 201211
